FAERS Safety Report 6095064-6 (Version None)
Quarter: 2009Q1

REPORT INFORMATION
  Report Type: 
  Country: None (occurrence: None)
  Receive Date: 20090227
  Receipt Date: 20080318
  Transmission Date: 20090719
  Serious: No
  Sender: FDA-Public Use
  Company Number: A0702436A

PATIENT
  Age: 23 Year
  Sex: Female

DRUGS (1)
  1. LAMICTAL [Suspect]
     Indication: CEREBRAL DISORDER
     Dosage: 200MG PER DAY
     Route: 048
     Dates: start: 20071209

REACTIONS (3)
  - ANXIETY [None]
  - FEELING ABNORMAL [None]
  - PRODUCT QUALITY ISSUE [None]
